FAERS Safety Report 26107033 (Version 1)
Quarter: 2025Q4

REPORT INFORMATION
  Report Type: Spontaneous
  Country: TR (occurrence: TR)
  Receive Date: 20251201
  Receipt Date: 20251201
  Transmission Date: 20260118
  Serious: Yes (Death, Other)
  Sender: BAXTER
  Company Number: TR-MLMSERVICE-20251117-PI716184-00082-1

PATIENT
  Age: 4 Year
  Sex: Male

DRUGS (6)
  1. IFOSFAMIDE [Suspect]
     Active Substance: IFOSFAMIDE
     Indication: Glioneuronal tumour
     Dosage: FIRST CYCLE
     Route: 065
  2. IFOSFAMIDE [Suspect]
     Active Substance: IFOSFAMIDE
     Indication: Metastases to meninges
  3. CARBOPLATIN [Suspect]
     Active Substance: CARBOPLATIN
     Indication: Glioneuronal tumour
     Dosage: FIRST CYCLE
     Route: 065
  4. CARBOPLATIN [Suspect]
     Active Substance: CARBOPLATIN
     Indication: Metastases to meninges
  5. ETOPOSIDE [Suspect]
     Active Substance: ETOPOSIDE
     Indication: Glioneuronal tumour
     Dosage: FIRST CYCLE
     Route: 065
  6. ETOPOSIDE [Suspect]
     Active Substance: ETOPOSIDE
     Indication: Metastases to meninges

REACTIONS (1)
  - Febrile neutropenia [Fatal]
